FAERS Safety Report 8110917-2 (Version None)
Quarter: 2012Q1

REPORT INFORMATION
  Report Type: 
  Country: None (occurrence: None)
  Receive Date: 20120203
  Receipt Date: 20120126
  Transmission Date: 20120608
  Serious: Yes (Other)
  Sender: FDA-Public Use
  Company Number: US-AMGEN-USASP2012005755

PATIENT
  Age: 59 Year
  Sex: Male
  Weight: 87.075 kg

DRUGS (6)
  1. RIBAVIRIN [Concomitant]
     Indication: HEPATITIS C
     Dosage: 1000 MG, QD
     Dates: start: 20110617
  2. RIBAVIRIN [Concomitant]
     Dosage: 200 MG, QD
     Dates: start: 20110617
  3. GABAPENTIN [Concomitant]
     Indication: POLYNEUROPATHY
     Dosage: UNK UNK, QD
     Route: 048
     Dates: start: 20090101
  4. BOCEPREVIR [Concomitant]
     Indication: HEPATITIS C
  5. PROCRIT [Suspect]
     Indication: ANAEMIA
     Dosage: 40000 IU, Q2WK
     Route: 058
     Dates: start: 20120111
  6. INTERFERON [Concomitant]
     Indication: HEPATITIS C
     Dosage: UNK UNK, QWK
     Route: 058
     Dates: start: 20110617

REACTIONS (1)
  - PLATELET COUNT DECREASED [None]
